FAERS Safety Report 7579657-2 (Version None)
Quarter: 2011Q2

REPORT INFORMATION
  Report Type: 
  Country: None (occurrence: None)
  Receive Date: 20110629
  Receipt Date: 20110526
  Transmission Date: 20111010
  Serious: Yes (Other)
  Sender: FDA-Public Use
  Company Number: US-BAYER-2011-049791

PATIENT
  Age: 37 Year
  Sex: Female
  Weight: 68.027 kg

DRUGS (5)
  1. ZOCOR [Concomitant]
     Indication: BLOOD CHOLESTEROL INCREASED
     Dosage: 20 MG, QD
     Route: 048
  2. YASMIN [Suspect]
     Indication: CONTRACEPTION
     Dosage: UNK
     Dates: start: 20060101
  3. YAZ [Suspect]
     Indication: CONTRACEPTION
     Dosage: UNK
     Dates: end: 20090101
  4. CLARITIN [Concomitant]
     Indication: SEASONAL ALLERGY
     Dosage: 10 MG, QD
     Route: 048
  5. LEXAPRO [Concomitant]
     Indication: ANXIETY
     Dosage: 20 MG, QD
     Route: 048

REACTIONS (3)
  - ABDOMINAL PAIN [None]
  - CHOLECYSTITIS CHRONIC [None]
  - GALLBLADDER DISORDER [None]
